FAERS Safety Report 19798329 (Version 1)
Quarter: 2021Q3

REPORT INFORMATION
  Report Type: Spontaneous
  Country: US (occurrence: US)
  Receive Date: 20210907
  Receipt Date: 20210907
  Transmission Date: 20211014
  Serious: No
  Sender: FDA-Public Use
  Company Number: None

PATIENT
  Age: 6 Month
  Sex: Female
  Weight: 6.75 kg

DRUGS (3)
  1. ANTIHISTAMINE TEETHING TABLETS (DIPHENHYDRAMINE) [Concomitant]
  2. ACETAMINOPHEN HYDROCORTISONE CREAM 1% [Concomitant]
  3. ACETAMINOPHEN. [Suspect]
     Active Substance: ACETAMINOPHEN
     Indication: TEETHING
     Dates: start: 20210614, end: 20210905

REACTIONS (2)
  - Rash [None]
  - Drug hypersensitivity [None]

NARRATIVE: CASE EVENT DATE: 20210906
